FAERS Safety Report 9763676 (Version 1)
Quarter: 2013Q4

REPORT INFORMATION
  Report Type: Spontaneous
  Country: US (occurrence: US)
  Receive Date: 20131216
  Receipt Date: 20131216
  Transmission Date: 20140711
  Serious: No
  Sender: FDA-Public Use
  Company Number: US-BIOGENIDEC-2013BI110779

PATIENT
  Age: 61 Year
  Sex: Female

DRUGS (1)
  1. TECFIDERA [Suspect]
     Indication: RELAPSING-REMITTING MULTIPLE SCLEROSIS
     Route: 048

REACTIONS (4)
  - Aphasia [Unknown]
  - Impaired driving ability [Unknown]
  - Weight increased [Not Recovered/Not Resolved]
  - Mobility decreased [Not Recovered/Not Resolved]
